FAERS Safety Report 6624293-5 (Version None)
Quarter: 2010Q1

REPORT INFORMATION
  Report Type: 
  Country: None (occurrence: None)
  Receive Date: 20100310
  Receipt Date: 20091103
  Transmission Date: 20100710
  Serious: No
  Sender: FDA-Public Use
  Company Number: US-BIOGENIDEC-2009BI035781

PATIENT
  Sex: Female

DRUGS (3)
  1. AVONEX [Suspect]
     Indication: MULTIPLE SCLEROSIS
     Route: 030
     Dates: start: 20010501
  2. AVONEX [Suspect]
     Route: 030
     Dates: end: 20081111
  3. AVONEX [Suspect]
     Route: 030
     Dates: start: 20091025

REACTIONS (5)
  - ANXIETY [None]
  - FEAR [None]
  - GAIT DISTURBANCE [None]
  - MUSCLE SPASMS [None]
  - TENSION [None]
